FAERS Safety Report 8815735 (Version 1)
Quarter: 2012Q4

REPORT INFORMATION
  Report Type: 
  Country: US (occurrence: US)
  Receive Date: 20120928
  Receipt Date: 20120928
  Transmission Date: 20130627
  Serious: No
  Sender: FDA-Public Use
  Company Number: US-009507513-1209USA005426

PATIENT
  Sex: Female

DRUGS (3)
  1. PEGINTRON [Suspect]
     Indication: HEPATITIS
     Dosage: 150 Microgram, qw
     Route: 058
     Dates: start: 201207, end: 2012
  2. VICTRELIS [Suspect]
  3. RIBAVIRIN [Suspect]

REACTIONS (1)
  - Platelet count decreased [Unknown]
